FAERS Safety Report 8411386 (Version 2)
Quarter: 2014Q1

REPORT INFORMATION
  Report Type: Spontaneous
  Country: US (occurrence: None)
  Receive Date: 20111227
  Receipt Date: 20130107
  Transmission Date: 20141002
  Serious: No
  Sender: FDA-Public Use
  Company Number: PHEH2011US08166

PATIENT
  Age: 66 Year
  Sex: Female
  Weight: 102 kg

DRUGS (3)
  1. GILENYA [Suspect]
     Indication: MULTIPLE SCLEROSIS
     Dosage: 0.5 MG, QD, ORAL
     Route: 048
     Dates: start: 20111018
  2. VALTREX (VALACICLOVIR HYDROCHLORIDE) [Concomitant]
  3. ZYRTEC (CETIRIZINE HYDROCHLORIDE) [Concomitant]

REACTIONS (7)
  - Nausea [None]
  - Pain [None]
  - Nasal congestion [None]
  - Chills [None]
  - Pyrexia [None]
  - Oropharyngeal pain [None]
  - Cough [None]
